FAERS Safety Report 5036191-1 (Version None)
Quarter: 2006Q2

REPORT INFORMATION
  Report Type: 
  Country: None (occurrence: None)
  Receive Date: 20060531
  Receipt Date: 20050705
  Transmission Date: 20061013
  Serious: Yes (Other)
  Sender: FDA-Public Use
  Company Number: 2005098254

PATIENT
  Age: 69 Year
  Sex: Female
  Weight: 78.9259 kg

DRUGS (6)
  1. COLESTIPOL HCL [Suspect]
     Indication: BLOOD CHOLESTEROL
     Dosage: 2 GRAM (1 GRAM, 2 IN 1 D), ORAL
     Route: 048
     Dates: start: 20050201, end: 20050101
  2. LEXAPRO [Suspect]
     Indication: DEPRESSION
     Dosage: 10 MG (10 MG, 1 IN 1 D), ORAL
     Route: 048
     Dates: start: 20050201
  3. NORTRIPTYLINE HCL [Concomitant]
  4. HYDROCHLOROTHIAZIDE/TRIAMTERENE (HYDROCHLOROTHIAZIDE, TRIAMTERENE) [Concomitant]
  5. NORVASC [Concomitant]
  6. CENTRUM SILVER (ASCORBIC ACID, CALCIUM, MINERALS NOS, RETINOL, TOCOPHE [Concomitant]

REACTIONS (2)
  - PRURITUS [None]
  - RASH [None]
